FAERS Safety Report 21952651 (Version 1)
Quarter: 2023Q1

REPORT INFORMATION
  Report Type: Report from Study
  Country: US (occurrence: US)
  Receive Date: 20230203
  Receipt Date: 20230203
  Transmission Date: 20230417
  Serious: Yes (Other)
  Sender: FDA-Public Use
  Company Number: US-EXELIXIS-CABO-22054985

PATIENT
  Sex: Male

DRUGS (1)
  1. CABOMETYX [Suspect]
     Active Substance: CABOZANTINIB S-MALATE
     Indication: Renal cancer
     Dosage: 60 MG, QD

REACTIONS (15)
  - Weight decreased [Unknown]
  - Haematoma [Unknown]
  - Peripheral swelling [Unknown]
  - Weight increased [Unknown]
  - Pain in extremity [Unknown]
  - Decreased appetite [Unknown]
  - Diarrhoea [Unknown]
  - Metastases to liver [Unknown]
  - Metastases to lung [Unknown]
  - Malignant neoplasm progression [Unknown]
  - Metastases to pancreas [Unknown]
  - Metastases to thyroid [Unknown]
  - Metastases to soft tissue [Unknown]
  - Metastases to central nervous system [Unknown]
  - Metastases to spine [Unknown]
